FAERS Safety Report 5744001-X (Version None)
Quarter: 2008Q2

REPORT INFORMATION
  Report Type: 
  Country: None (occurrence: None)
  Receive Date: 20080516
  Receipt Date: 20080516
  Transmission Date: 20081010
  Serious: Yes (Hospitalization)
  Sender: FDA-Public Use
  Company Number: None

PATIENT
  Age: 78 Year
  Sex: Male

DRUGS (2)
  1. OXALIPLATIN [Suspect]
     Dosage: IV
     Route: 042
  2. FLUOROURACIL [Suspect]

REACTIONS (3)
  - MUCOUS MEMBRANE DISORDER [None]
  - RECTAL HAEMORRHAGE [None]
  - THROMBOCYTOPENIA [None]
